FAERS Safety Report 17763763 (Version 1)
Quarter: 2020Q2

REPORT INFORMATION
  Report Type: Spontaneous
  Country: FR (occurrence: FR)
  Receive Date: 20200510
  Receipt Date: 20200510
  Transmission Date: 20200714
  Serious: Yes (Hospitalization, Congenital Anomaly)
  Sender: FDA-Public Use
  Company Number: FR-CADILA HEALTHCARE LIMITED-FR-ZYDUS-026393

PATIENT

DRUGS (1)
  1. TRAMADOL. [Suspect]
     Active Substance: TRAMADOL
     Indication: PRODUCT USED FOR UNKNOWN INDICATION
     Route: 064
     Dates: start: 20130809, end: 20140424

REACTIONS (3)
  - Drug withdrawal syndrome neonatal [Recovered/Resolved]
  - Cleft palate [Recovered/Resolved]
  - Cleft uvula [Recovered/Resolved]

NARRATIVE: CASE EVENT DATE: 201404
